FAERS Safety Report 10021075 (Version 1)
Quarter: 2014Q1

REPORT INFORMATION
  Report Type: Spontaneous
  Country: IT (occurrence: None)
  Receive Date: 20140313
  Receipt Date: 20140313
  Transmission Date: 20141002
  Serious: Yes (Hospitalization)
  Sender: FDA-Public Use
  Company Number: AUR-AP-2014-02547

PATIENT
  Age: 57 Year
  Sex: Female

DRUGS (3)
  1. RAMIPRIL (RAMIPRIL) [Suspect]
     Indication: HYPERTENSION
     Dosage: (2.5MG, 1 D,) ORAL
     Route: 048
     Dates: start: 20130701, end: 20140119
  2. ALIFUS DISKUS (SERETIDE) [Concomitant]
  3. BARNIDIPINE HYDROCHLORIDE (BARNIDIPINE HYDROCHLORIDE) [Concomitant]

REACTIONS (2)
  - Urticaria [None]
  - Bronchospasm [None]
